FAERS Safety Report 14654751 (Version 1)
Quarter: 2018Q1

REPORT INFORMATION
  Report Type: Spontaneous
  Country: US (occurrence: US)
  Receive Date: 20180319
  Receipt Date: 20180319
  Transmission Date: 20180509
  Serious: Yes (Other)
  Sender: FDA-Public Use
  Company Number: US-GLAXOSMITHKLINE-US2018043215

PATIENT
  Age: 70 Year
  Sex: Female

DRUGS (18)
  1. VENTOLIN HFA [Suspect]
     Active Substance: ALBUTEROL SULFATE
     Indication: BRONCHITIS CHRONIC
     Dosage: 1 PUFF(S), PRN
     Route: 055
  2. SERTRALINE [Concomitant]
     Active Substance: SERTRALINE HYDROCHLORIDE
  3. TIZANIDINE. [Concomitant]
     Active Substance: TIZANIDINE
  4. PREDNISONE. [Concomitant]
     Active Substance: PREDNISONE
  5. ANORO ELLIPTA [Suspect]
     Active Substance: UMECLIDINIUM BROMIDE\VILANTEROL TRIFENATATE
     Indication: EMPHYSEMA
  6. ELIQUIS [Concomitant]
     Active Substance: APIXABAN
  7. FISH OIL [Concomitant]
     Active Substance: FISH OIL
  8. ANORO ELLIPTA [Suspect]
     Active Substance: UMECLIDINIUM BROMIDE\VILANTEROL TRIFENATATE
     Indication: BRONCHITIS CHRONIC
     Dosage: 1 PUFF(S), 1D
     Route: 055
     Dates: start: 201704
  9. POLYETHYLENE [Concomitant]
     Active Substance: HIGH DENSITY POLYETHYLENE
  10. METHOTREXATE. [Concomitant]
     Active Substance: METHOTREXATE
  11. RANITIDINE. [Concomitant]
     Active Substance: RANITIDINE
  12. FLECAINIDE [Concomitant]
     Active Substance: FLECAINIDE
  13. OMEPRAZOLE. [Concomitant]
     Active Substance: OMEPRAZOLE
  14. VENTOLIN HFA [Suspect]
     Active Substance: ALBUTEROL SULFATE
     Indication: EMPHYSEMA
     Dosage: UNK, Z
  15. METOPROLOL. [Concomitant]
     Active Substance: METOPROLOL
  16. FOLIC ACID. [Concomitant]
     Active Substance: FOLIC ACID
  17. ACYCLOVIR. [Concomitant]
     Active Substance: ACYCLOVIR
  18. VITAMIN D3 [Concomitant]
     Active Substance: CHOLECALCIFEROL

REACTIONS (11)
  - Ageusia [Not Recovered/Not Resolved]
  - Lung disorder [Unknown]
  - Swollen tongue [Not Recovered/Not Resolved]
  - Glossodynia [Unknown]
  - Upper respiratory tract infection [Recovering/Resolving]
  - Hypoaesthesia oral [Not Recovered/Not Resolved]
  - Pyrexia [Recovered/Resolved]
  - Dysgeusia [Not Recovered/Not Resolved]
  - Mouth injury [Not Recovered/Not Resolved]
  - Pneumonia [Recovering/Resolving]
  - Drug dose omission [Unknown]

NARRATIVE: CASE EVENT DATE: 20171123
